FAERS Safety Report 25215030 (Version 1)
Quarter: 2025Q2

REPORT INFORMATION
  Report Type: Spontaneous
  Country: CA (occurrence: CA)
  Receive Date: 20250418
  Receipt Date: 20250418
  Transmission Date: 20250716
  Serious: Yes (Life-Threatening)
  Sender: ACCORD
  Company Number: None

PATIENT
  Age: 11 Year
  Sex: Female
  Weight: 27 kg

DRUGS (22)
  1. CARBOPLATIN [Suspect]
     Active Substance: CARBOPLATIN
     Indication: Bone marrow conditioning regimen
     Route: 042
  2. THIOTEPA [Suspect]
     Active Substance: THIOTEPA
     Indication: Bone marrow conditioning regimen
     Route: 042
  3. ACETAMINOPHEN [Concomitant]
     Active Substance: ACETAMINOPHEN
  4. ATROPINE [Concomitant]
     Active Substance: ATROPINE
  5. CALCIUM [Concomitant]
     Active Substance: CALCIUM
  6. CEFTAZIDIME [Concomitant]
     Active Substance: CEFTAZIDIME
  7. CHOLECALCIFEROL [Concomitant]
     Active Substance: CHOLECALCIFEROL
  8. CLOBETASOL PROPIONATE [Concomitant]
     Active Substance: CLOBETASOL PROPIONATE
  9. FAMOTIDINE [Concomitant]
     Active Substance: FAMOTIDINE
  10. FLUCONAZOLE [Concomitant]
     Active Substance: FLUCONAZOLE
  11. GRANULOCYTE COLONY STIMULATING FACT [Concomitant]
  12. HYDROCORTISONE [Concomitant]
     Active Substance: HYDROCORTISONE
  13. LANSOPRAZOLE [Concomitant]
     Active Substance: LANSOPRAZOLE
  14. MAGNESIUM [Concomitant]
     Active Substance: MAGNESIUM
  15. MELATONIN [Concomitant]
     Active Substance: MELATONIN
  16. MYCAMINE [Concomitant]
     Active Substance: MICAFUNGIN SODIUM
     Route: 042
  17. OLANZAPINE [Concomitant]
     Active Substance: OLANZAPINE
  18. ONDANSETRON [Concomitant]
     Active Substance: ONDANSETRON
  19. PALONOSETRON HYDROCHLORIDE [Concomitant]
     Active Substance: PALONOSETRON HYDROCHLORIDE
  20. POLYETHYLENE GLYCOL [Concomitant]
     Active Substance: POLYETHYLENE GLYCOL
  21. THIAMINE HYDROCHLORIDE [Concomitant]
     Active Substance: THIAMINE HYDROCHLORIDE
  22. URSODIOL [Concomitant]
     Active Substance: URSODIOL

REACTIONS (3)
  - Renal tubular disorder [Unknown]
  - Mucosal inflammation [Unknown]
  - Aplastic anaemia [Unknown]
